FAERS Safety Report 5700270-3 (Version None)
Quarter: 2008Q2

REPORT INFORMATION
  Report Type: 
  Country: None (occurrence: None)
  Receive Date: 20080408
  Receipt Date: 20080408
  Transmission Date: 20081010
  Serious: Yes (Hospitalization)
  Sender: FDA-Public Use
  Company Number: None

PATIENT
  Sex: Female
  Weight: 88 kg

DRUGS (1)
  1. TEMOZOLOMIDE [Suspect]
     Dosage: 7285 MG

REACTIONS (7)
  - ANOREXIA [None]
  - DEEP VEIN THROMBOSIS [None]
  - DELUSION [None]
  - FAILURE TO THRIVE [None]
  - MENTAL STATUS CHANGES [None]
  - ORAL INTAKE REDUCED [None]
  - PULMONARY EMBOLISM [None]
